FAERS Safety Report 17976886 (Version 1)
Quarter: 2020Q3

REPORT INFORMATION
  Report Type: Spontaneous
  Country: IT (occurrence: IT)
  Receive Date: 20200703
  Receipt Date: 20200703
  Transmission Date: 20201103
  Serious: Yes (Hospitalization, Other)
  Sender: FDA-Public Use
  Company Number: IT-ALLERGAN-2025389US

PATIENT
  Sex: Male

DRUGS (3)
  1. HYDROCHLOROTHIAZIDE UNK [Suspect]
     Active Substance: HYDROCHLOROTHIAZIDE
     Indication: HYPERTENSION
  2. IRBESARTAN. [Concomitant]
     Active Substance: IRBESARTAN
     Indication: HYPERTENSION
  3. LEUPROLIDE [Suspect]
     Active Substance: LEUPROLIDE
     Indication: PROSTATE CANCER
     Dosage: 22.5 MG EVERY THREE MONTHS

REACTIONS (5)
  - Seizure [Unknown]
  - Hypokalaemia [Unknown]
  - Sinus bradycardia [Unknown]
  - Electrocardiogram QT prolonged [Unknown]
  - Syncope [Unknown]
